FAERS Safety Report 8817069 (Version 1)
Quarter: 2012Q4

REPORT INFORMATION
  Report Type: Spontaneous
  Country: US (occurrence: None)
  Receive Date: 20121003
  Receipt Date: 20121003
  Transmission Date: 20130627
  Serious: Yes (Other)
  Sender: FDA-Public Use
  Company Number: None

PATIENT
  Age: 51 Year
  Sex: Male

DRUGS (1)
  1. ZYCLARA [Suspect]
     Indication: SQUAMOUS CELL CARCINOMA OF SKIN IN SITU
     Dosage: 1 packet, nightly, top
     Route: 061
     Dates: start: 20110815, end: 20110828

REACTIONS (4)
  - Mania [None]
  - Insomnia [None]
  - Thinking abnormal [None]
  - Agitation [None]
